FAERS Safety Report 23014370 (Version 2)
Quarter: 2025Q4

REPORT INFORMATION
  Report Type: Report from Study
  Country: GB (occurrence: GB)
  Receive Date: 20231002
  Receipt Date: 20251230
  Transmission Date: 20260117
  Serious: Yes (Other)
  Sender: REGENERON
  Company Number: GB-SA-SAC20230928000043

PATIENT
  Age: 80 Year
  Sex: Female

DRUGS (1)
  1. PRALUENT [Suspect]
     Active Substance: ALIROCUMAB
     Indication: Arteriosclerosis coronary artery
     Dosage: 300 MG, QM, SOLUTION FOR INJECTION
     Route: 058

REACTIONS (1)
  - Dementia [Unknown]
